FAERS Safety Report 24096141 (Version 1)
Quarter: 2024Q3

REPORT INFORMATION
  Report Type: Spontaneous
  Country: ES (occurrence: ES)
  Receive Date: 20240716
  Receipt Date: 20240716
  Transmission Date: 20241017
  Serious: Yes (Other)
  Sender: JOHNSON AND JOHNSON
  Company Number: ES-JNJFOC-20240723782

PATIENT
  Sex: Female

DRUGS (1)
  1. TOPAMAX [Suspect]
     Active Substance: TOPIRAMATE
     Indication: Product used for unknown indication
     Route: 048

REACTIONS (8)
  - Thrombosis [Unknown]
  - Seizure [Unknown]
  - Syncope [Unknown]
  - Visual impairment [Unknown]
  - Skin discolouration [Unknown]
  - Speech disorder [Unknown]
  - Migraine [Unknown]
  - Hypertension [Unknown]
